FAERS Safety Report 6062533-4 (Version None)
Quarter: 2009Q1

REPORT INFORMATION
  Report Type: 
  Country: None (occurrence: None)
  Receive Date: 20090202
  Receipt Date: 20090202
  Transmission Date: 20090719
  Serious: Yes (Disabling, Other)
  Sender: FDA-Public Use
  Company Number: None

PATIENT
  Age: 54 Year
  Sex: Female
  Weight: 117.9352 kg

DRUGS (5)
  1. SERTRALINE [Suspect]
     Indication: ANXIETY
     Dosage: .25 1/2 A DAY
     Dates: start: 20081215, end: 20090125
  2. SERTRALINE [Suspect]
     Indication: DEPRESSION
     Dosage: .25 1/2 A DAY
     Dates: start: 20081215, end: 20090125
  3. SERTRALINE [Suspect]
     Indication: POST-TRAUMATIC STRESS DISORDER
     Dosage: .25 1/2 A DAY
     Dates: start: 20081215, end: 20090125
  4. PAXIL [Suspect]
     Indication: DEPRESSION
     Dosage: .10 1 A DAY
     Dates: start: 20081001, end: 20081214
  5. PAXIL [Suspect]
     Indication: POST-TRAUMATIC STRESS DISORDER
     Dosage: .10 1 A DAY
     Dates: start: 20081001, end: 20081214

REACTIONS (1)
  - UNEVALUABLE EVENT [None]
